FAERS Safety Report 14527352 (Version 2)
Quarter: 2018Q1

REPORT INFORMATION
  Report Type: Report from Study
  Country: BE (occurrence: BE)
  Receive Date: 20180213
  Receipt Date: 20180301
  Transmission Date: 20180509
  Serious: Yes (Life-Threatening, Hospitalization, Other)
  Sender: FDA-Public Use
  Company Number: PHHY2017BE151401

PATIENT
  Age: 55 Year
  Sex: Female
  Weight: 54 kg

DRUGS (2)
  1. ENTRESTO [Suspect]
     Active Substance: SACUBITRIL\VALSARTAN
     Dosage: 200 MG, (97 MG SACUBITRIL, 103 MG VALSARTAN),BID
     Route: 048
     Dates: start: 20170207
  2. ENTRESTO [Suspect]
     Active Substance: SACUBITRIL\VALSARTAN
     Indication: CARDIAC FAILURE
     Dosage: 200 MG, (97 MG SACUBITRIL, 103 MG VALSARTAN),BID
     Route: 048
     Dates: start: 20170105

REACTIONS (13)
  - Hyponatraemia [Recovered/Resolved]
  - Pulmonary hypertension [Recovered/Resolved]
  - Anaemia [Recovered/Resolved]
  - Nasopharyngitis [Recovered/Resolved]
  - Cardiac failure [Recovered/Resolved]
  - Fatigue [Not Recovered/Not Resolved]
  - Hyperkalaemia [Recovered/Resolved]
  - Acute kidney injury [Recovered/Resolved]
  - Cardiogenic shock [Recovered/Resolved]
  - Hip fracture [Recovering/Resolving]
  - Facial bones fracture [Recovered/Resolved]
  - Blood lactic acid increased [Unknown]
  - Rash [Unknown]

NARRATIVE: CASE EVENT DATE: 20170621
